FAERS Safety Report 6016173-3 (Version None)
Quarter: 2008Q4

REPORT INFORMATION
  Report Type: 
  Country: None (occurrence: None)
  Receive Date: 20081216
  Receipt Date: 20080321
  Transmission Date: 20090506
  Serious: Yes (Disabling)
  Sender: FDA-Public Use
  Company Number: US-WYE-H03236208

PATIENT
  Age: 54 Year
  Sex: Male
  Weight: 113.5 kg

DRUGS (3)
  1. EFFEXOR XR [Suspect]
     Indication: ANXIETY
     Dosage: (3 DIFFERENT DOSES),ORAL
     Route: 048
     Dates: start: 20070301, end: 20070301
  2. EFFEXOR XR [Suspect]
     Indication: DEPRESSION
     Dosage: (3 DIFFERENT DOSES),ORAL
     Route: 048
     Dates: start: 20070301, end: 20070301
  3. PROZAC [Concomitant]

REACTIONS (11)
  - APATHY [None]
  - BLOOD PRESSURE ABNORMAL [None]
  - DISTURBANCE IN ATTENTION [None]
  - DRUG WITHDRAWAL SYNDROME [None]
  - FEELING ABNORMAL [None]
  - MEMORY IMPAIRMENT [None]
  - PARAESTHESIA [None]
  - SUDDEN ONSET OF SLEEP [None]
  - THYROID DISORDER [None]
  - WEIGHT [None]
  - WEIGHT INCREASED [None]
